FAERS Safety Report 6725646-7 (Version None)
Quarter: 2010Q2

REPORT INFORMATION
  Report Type: 
  Country: None (occurrence: None)
  Receive Date: 20100514
  Receipt Date: 20100513
  Transmission Date: 20101027
  Serious: Yes (Hospitalization)
  Sender: FDA-Public Use
  Company Number: US-ROXANE LABORATORIES, INC.-2010-RO-00572RO

PATIENT
  Sex: Female

DRUGS (3)
  1. OXCARBAZEPINE [Suspect]
     Indication: CONVULSION
     Dosage: 750 MG
     Route: 048
  2. LEVOXYL [Concomitant]
  3. BLOOD PRESSURE MEDICINE [Concomitant]
     Indication: BLOOD PRESSURE FLUCTUATION

REACTIONS (4)
  - ABDOMINAL PAIN UPPER [None]
  - MUSCLE CONTRACTIONS INVOLUNTARY [None]
  - NAUSEA [None]
  - TREMOR [None]
